FAERS Safety Report 6434436-4 (Version None)
Quarter: 2009Q4

REPORT INFORMATION
  Report Type: 
  Country: None (occurrence: None)
  Receive Date: 20091110
  Receipt Date: 20091029
  Transmission Date: 20100525
  Serious: Yes (Congenital Anomaly)
  Sender: FDA-Public Use
  Company Number: FR-PFIZER INC-2009290343

PATIENT
  Sex: Female

DRUGS (1)
  1. CYTOTEC [Suspect]
     Dosage: 2 DF SINGLE INTAKE
     Route: 064
     Dates: start: 20090301, end: 20090301

REACTIONS (2)
  - DILATATION VENTRICULAR [None]
  - DRUG EXPOSURE DURING PREGNANCY [None]
